FAERS Safety Report 7504086-7 (Version None)
Quarter: 2011Q2

REPORT INFORMATION
  Report Type: 
  Country: None (occurrence: None)
  Receive Date: 20110525
  Receipt Date: 20110523
  Transmission Date: 20111010
  Serious: Yes (Death, Hospitalization)
  Sender: FDA-Public Use
  Company Number: DE-ABBOTT-11P-062-0703627-00

PATIENT
  Sex: Female

DRUGS (11)
  1. METHOTREXATE [Concomitant]
     Indication: RHEUMATOID ARTHRITIS
     Dosage: 10-15 MG
     Dates: start: 19961201, end: 20070501
  2. ASPIRIN [Concomitant]
     Indication: PRODUCT USED FOR UNKNOWN INDICATION
     Dates: end: 20090101
  3. NEPRESOL [Concomitant]
     Indication: PRODUCT USED FOR UNKNOWN INDICATION
     Dates: end: 20090101
  4. CORDANUM [Concomitant]
     Indication: PRODUCT USED FOR UNKNOWN INDICATION
     Dates: end: 20090101
  5. HUMIRA [Suspect]
     Indication: RHEUMATOID ARTHRITIS
     Route: 058
     Dates: start: 20040201, end: 20081201
  6. ATACAND [Concomitant]
     Indication: PRODUCT USED FOR UNKNOWN INDICATION
     Dates: end: 20090101
  7. TORSEMIDE [Concomitant]
     Indication: PRODUCT USED FOR UNKNOWN INDICATION
     Dates: end: 20090101
  8. LEVEMIR [Concomitant]
     Indication: DIABETES MELLITUS
     Dosage: IN THE EVENING
     Route: 058
     Dates: start: 20090201
  9. GLYBURIDE [Concomitant]
     Indication: DIABETES MELLITUS
     Route: 048
     Dates: end: 20090101
  10. BERODUAL [Concomitant]
     Indication: BRONCHOSPASM
     Dates: start: 20090208
  11. HYDROCHLOROTHIAZDE TAB [Concomitant]
     Indication: PRODUCT USED FOR UNKNOWN INDICATION
     Dates: end: 20090101

REACTIONS (8)
  - PULMONARY CONGESTION [None]
  - ACUTE MYOCARDIAL INFARCTION [None]
  - SOFT TISSUE NECROSIS [None]
  - CARDIOGENIC SHOCK [None]
  - SEPSIS [None]
  - CARDIAC FAILURE [None]
  - PLEURAL EFFUSION [None]
  - CORONARY ARTERY DISEASE [None]
